FAERS Safety Report 20175540 (Version 1)
Quarter: 2021Q4

REPORT INFORMATION
  Report Type: Spontaneous
  Country: TW (occurrence: TW)
  Receive Date: 20211213
  Receipt Date: 20211213
  Transmission Date: 20220304
  Serious: Yes (Other)
  Sender: FDA-Public Use
  Company Number: TW-Merck Healthcare KGaA-9284062

PATIENT
  Age: 56 Year
  Sex: Male
  Weight: 55 kg

DRUGS (7)
  1. ERBITUX [Suspect]
     Active Substance: CETUXIMAB
     Indication: Oesophageal carcinoma
     Dosage: 400 MG, UNK
     Route: 041
     Dates: start: 20171027
  2. FLUOROURACIL [Concomitant]
     Active Substance: FLUOROURACIL
     Indication: Oesophageal carcinoma
     Dosage: 1000 MG, UNK
     Dates: start: 20170713, end: 20180228
  3. FLUOROURACIL [Concomitant]
     Active Substance: FLUOROURACIL
     Dosage: 980-1035MG
     Dates: start: 20180320, end: 20180723
  4. CISPLATIN [Concomitant]
     Active Substance: CISPLATIN
     Indication: Oesophageal carcinoma
     Dosage: 50 MG, UNK
     Dates: start: 20170713, end: 20180228
  5. CISPLATIN [Concomitant]
     Active Substance: CISPLATIN
     Dosage: UNK
     Dates: end: 20180320
  6. OPDIVO [Concomitant]
     Active Substance: NIVOLUMAB
     Indication: Oesophageal carcinoma
     Dosage: 100 MG, UNK
     Dates: start: 20170831
  7. OPDIVO [Concomitant]
     Active Substance: NIVOLUMAB
     Dosage: 100 MG, UNK
     Dates: start: 20180320, end: 20180723

REACTIONS (10)
  - Nephropathy toxic [Unknown]
  - Neuropathy peripheral [Unknown]
  - Thrombocytopenia [Unknown]
  - Anaemia [Unknown]
  - Alopecia [Unknown]
  - Hepatic enzyme increased [Unknown]
  - Leukopenia [Unknown]
  - Diarrhoea [Unknown]
  - Nausea [Unknown]
  - Fatigue [Unknown]
